FAERS Safety Report 16563158 (Version 2)
Quarter: 2019Q3

REPORT INFORMATION
  Report Type: Report from Study
  Country: US (occurrence: US)
  Receive Date: 20190711
  Receipt Date: 20190718
  Transmission Date: 20191004
  Serious: Yes (Hospitalization)
  Sender: FDA-Public Use
  Company Number: US-EXELIXIS-XL18419022372

PATIENT
  Age: 76 Year
  Sex: Male
  Weight: 79.8 kg

DRUGS (14)
  1. ALBUTEROL. [Concomitant]
     Active Substance: ALBUTEROL
  2. ONDANSETRON [Concomitant]
     Active Substance: ONDANSETRON
  3. BENZONATATE. [Concomitant]
     Active Substance: BENZONATATE
  4. FUROSEMIDE. [Concomitant]
     Active Substance: FUROSEMIDE
  5. XL184 [Suspect]
     Active Substance: CABOZANTINIB
     Indication: HEPATOCELLULAR CARCINOMA
     Dosage: 40 MG, QD
     Route: 048
     Dates: start: 20190513
  6. PRAVASTATIN. [Concomitant]
     Active Substance: PRAVASTATIN
  7. SITAGLIPTIN [Concomitant]
     Active Substance: SITAGLIPTIN
  8. SENNA [Concomitant]
     Active Substance: SENNA LEAF\SENNOSIDES\SENNOSIDES A AND B
  9. ATEZOLIZUMAB. [Suspect]
     Active Substance: ATEZOLIZUMAB
     Indication: HEPATOCELLULAR CARCINOMA
     Dosage: 1200 MG, Q3WEEKS
     Route: 042
     Dates: start: 20190513
  10. OXYCODONE [Concomitant]
     Active Substance: OXYCODONE
  11. METFORMIN [Concomitant]
     Active Substance: METFORMIN HYDROCHLORIDE
  12. DOCUSATE [Concomitant]
     Active Substance: DOCUSATE
  13. SPIRONOLACTONE. [Concomitant]
     Active Substance: SPIRONOLACTONE
  14. GUAIFENESIN. [Concomitant]
     Active Substance: GUAIFENESIN

REACTIONS (2)
  - Scrotal oedema [Recovering/Resolving]
  - Haemoptysis [Recovered/Resolved]

NARRATIVE: CASE EVENT DATE: 20190702
